FAERS Safety Report 7039219-2 (Version None)
Quarter: 2010Q4

REPORT INFORMATION
  Report Type: 
  Country: None (occurrence: None)
  Receive Date: 20101012
  Receipt Date: 20100929
  Transmission Date: 20110411
  Serious: Yes (Hospitalization, Other)
  Sender: FDA-Public Use
  Company Number: AT-JNJFOC-20100908740

PATIENT
  Age: 58 Year
  Sex: Female
  Weight: 48 kg

DRUGS (7)
  1. RISPERDAL [Suspect]
     Indication: SCHIZOPHRENIA
     Route: 065
  2. RISPERDAL [Suspect]
     Route: 065
  3. PSYCHOPAX [Suspect]
     Indication: SCHIZOPHRENIA, PARANOID TYPE
     Route: 065
  4. PSYCHOPAX [Suspect]
     Route: 065
  5. PSYCHOPAX [Suspect]
     Route: 065
  6. PSYCHOPAX [Suspect]
     Route: 065
  7. PSYCHOPAX [Suspect]
     Route: 065

REACTIONS (1)
  - DEEP VEIN THROMBOSIS [None]
